FAERS Safety Report 9777987 (Version 2)
Quarter: 2014Q1

REPORT INFORMATION
  Report Type: Spontaneous
  Country: JP (occurrence: JP)
  Receive Date: 20131223
  Receipt Date: 20140206
  Transmission Date: 20141002
  Serious: Yes (Other)
  Sender: FDA-Public Use
  Company Number: JP-ROCHE-1321174

PATIENT
  Age: 54 Year
  Sex: Female
  Weight: 43 kg

DRUGS (1)
  1. ROCEPHIN [Suspect]
     Indication: DIVERTICULITIS
     Dosage: TOTAL DOSAGE : 14G
     Route: 041

REACTIONS (3)
  - Cholelithiasis [Recovering/Resolving]
  - Bile duct obstruction [Recovering/Resolving]
  - Cholangitis [Recovering/Resolving]
